FAERS Safety Report 16449891 (Version 1)
Quarter: 2019Q2

REPORT INFORMATION
  Report Type: Spontaneous
  Country: FR (occurrence: FR)
  Receive Date: 20190619
  Receipt Date: 20190619
  Transmission Date: 20190711
  Serious: Yes (Other)
  Sender: FDA-Public Use
  Company Number: FR-TEVA-2019-FR-1045139

PATIENT
  Sex: Female
  Weight: 59 kg

DRUGS (2)
  1. COPAXONE [Suspect]
     Active Substance: GLATIRAMER ACETATE
     Dosage: ADMINISTERED WITH A C-SYNC
     Route: 058
  2. LUTERAN [Concomitant]
     Active Substance: CHLORMADINONE ACETATE
     Indication: CONTRACEPTION
     Route: 048
     Dates: start: 201807

REACTIONS (4)
  - Gait disturbance [Recovered/Resolved]
  - Injection site pain [Recovered/Resolved]
  - Syringe issue [Unknown]
  - Alopecia [Not Recovered/Not Resolved]
